FAERS Safety Report 6759551-7 (Version None)
Quarter: 2010Q2

REPORT INFORMATION
  Report Type: 
  Country: None (occurrence: None)
  Receive Date: 20100604
  Receipt Date: 20100524
  Transmission Date: 20101027
  Serious: Yes (Hospitalization, Disabling, Other)
  Sender: FDA-Public Use
  Company Number: 2009AC000238

PATIENT
  Age: 30 Year
  Sex: Male
  Weight: 102.5129 kg

DRUGS (51)
  1. DIGOXIN [Suspect]
     Indication: ATRIAL FIBRILLATION
     Dosage: 0.25 MG;QD;PO
     Route: 048
  2. DIGOXIN [Suspect]
     Indication: ATRIAL FIBRILLATION
     Dosage: 0.125 MG;PO
     Route: 048
     Dates: start: 20010717
  3. DIGOXIN [Suspect]
     Indication: CARDIAC FAILURE
     Dosage: 250 MCG;QD;PO
     Route: 047
     Dates: start: 20081101
  4. DIGOXIN [Suspect]
     Dosage: 0.25 MG;QD;PO
     Route: 048
     Dates: start: 20080512, end: 20080630
  5. DIGOXIN [Suspect]
     Dosage: AMIDE
     Route: 048
     Dates: start: 20080715, end: 20090501
  6. DIGOXIN [Suspect]
     Dosage: M,W,F, PO
     Route: 048
     Dates: start: 20090601
  7. DIGOXIN [Suspect]
     Indication: LEFT VENTRICULAR DYSFUNCTION
     Dosage: 0.125 MG;QD;PO
     Route: 048
     Dates: start: 20010717, end: 20080401
  8. AMIODARONE [Concomitant]
  9. BUMEX [Concomitant]
  10. COREG [Concomitant]
  11. COZAAR [Concomitant]
  12. POTASSIUM [Concomitant]
  13. ALDACTONE [Concomitant]
  14. ZAROXOLYN [Concomitant]
  15. WARFARIN [Concomitant]
  16. BENZOYL PEROXIDE [Concomitant]
  17. SPIRONOLACTONE [Concomitant]
  18. BUMETANIDE [Concomitant]
  19. AMOXICILLIN [Concomitant]
  20. AZITHROMYCIN [Concomitant]
  21. FLOVENT [Concomitant]
  22. CEPHALEXIN [Concomitant]
  23. ACETAMINOPHEN [Concomitant]
  24. FUROSEMIDE [Concomitant]
  25. TOBRAMYCIN [Concomitant]
  26. DOXYCLINE [Concomitant]
  27. KLOR-CON [Concomitant]
  28. LEVAQUIN [Concomitant]
  29. PROAIR HFA [Concomitant]
  30. HYDROCODONE [Concomitant]
  31. TRAMADOL [Concomitant]
  32. CYCLOBENZAPRINE [Concomitant]
  33. KETOCONAZOLE [Concomitant]
  34. ONDANSETRON HCL [Concomitant]
  35. BETAMETHASONE [Concomitant]
  36. ALLOPURINOL [Concomitant]
  37. METHYLPREDNISOLONE [Concomitant]
  38. POTASSIUM CHLORIDE [Concomitant]
  39. CELEBREX [Concomitant]
  40. MINOCYCLINE HCL [Concomitant]
  41. MUCINEX [Concomitant]
  42. MUCINEX [Concomitant]
  43. ALBUTEROL [Concomitant]
  44. PROVENTIL [Concomitant]
  45. PREVACID [Concomitant]
  46. FLU VACCINE [Concomitant]
  47. ZOFRAN [Concomitant]
  48. COLCHICINE [Concomitant]
  49. CARVEDILOL [Concomitant]
  50. ULORIC ACID [Concomitant]
  51. MILRINONE [Concomitant]

REACTIONS (46)
  - ABDOMINAL DISTENSION [None]
  - ACNE PUSTULAR [None]
  - AGGRESSION [None]
  - ANHEDONIA [None]
  - ANXIETY [None]
  - ATRIAL FIBRILLATION [None]
  - ATRIAL FLUTTER [None]
  - BACK PAIN [None]
  - BLOOD CHLORIDE DECREASED [None]
  - BLOOD POTASSIUM DECREASED [None]
  - BRONCHITIS [None]
  - CARDIAC FAILURE CONGESTIVE [None]
  - CARDIOACTIVE DRUG LEVEL INCREASED [None]
  - CARDIOMYOPATHY [None]
  - CHEST PAIN [None]
  - CHOLELITHIASIS [None]
  - CONJUNCTIVITIS [None]
  - EAR PAIN [None]
  - ECONOMIC PROBLEM [None]
  - FEELING ABNORMAL [None]
  - HAEMATURIA [None]
  - HEPATIC CONGESTION [None]
  - IMPAIRED WORK ABILITY [None]
  - INJURY [None]
  - MITRAL VALVE INCOMPETENCE [None]
  - OBESITY [None]
  - OEDEMA MUCOSAL [None]
  - OROPHARYNGEAL PAIN [None]
  - PAIN [None]
  - PAIN IN EXTREMITY [None]
  - PHARYNGITIS [None]
  - PLEURAL FIBROSIS [None]
  - PULMONARY HYPERTENSION [None]
  - PULMONARY VALVE CALCIFICATION [None]
  - PULMONARY VALVE INCOMPETENCE [None]
  - PULMONARY VALVE STENOSIS [None]
  - RENAL FAILURE ACUTE [None]
  - SICK SINUS SYNDROME [None]
  - SINUSITIS [None]
  - SPLENOMEGALY [None]
  - TRICUSPID VALVE INCOMPETENCE [None]
  - UNEVALUABLE EVENT [None]
  - VASCULAR RESISTANCE PULMONARY INCREASED [None]
  - VENTRICULAR TACHYCARDIA [None]
  - VISION BLURRED [None]
  - WEIGHT INCREASED [None]
